FAERS Safety Report 12288791 (Version 2)
Quarter: 2016Q2

REPORT INFORMATION
  Report Type: Spontaneous
  Country: CA (occurrence: CA)
  Receive Date: 20160421
  Receipt Date: 20160502
  Transmission Date: 20160815
  Serious: Yes (Hospitalization)
  Sender: FDA-Public Use
  Company Number: CA-JNJFOC-20160415042

PATIENT
  Age: 66 Year
  Sex: Female
  Weight: 92.99 kg

DRUGS (9)
  1. PANTOPRAZOLE [Concomitant]
     Active Substance: PANTOPRAZOLE SODIUM
     Indication: DYSPEPSIA
     Dosage: TOOK ME DOWN TO 200MG FROM 400MG
     Route: 065
  2. B COMPLEX WITH FOLIC ACID [Concomitant]
     Indication: PRODUCT USED FOR UNKNOWN INDICATION
     Route: 065
  3. PANTOPRAZOLE [Concomitant]
     Active Substance: PANTOPRAZOLE SODIUM
     Indication: DYSPEPSIA
     Dosage: INTERVAL: 3 PLUS YEARS
     Route: 065
  4. REACTINE [Suspect]
     Active Substance: CETIRIZINE HYDROCHLORIDE
     Indication: SEASONAL ALLERGY
     Dosage: ONE AT A TIME, ONE A DAY.
     Route: 048
  5. DILTIZEM [Concomitant]
     Indication: HYPERTENSION
     Dosage: INTERVAL: 5 PLUS YEARS
     Route: 065
  6. VITAMIN D3 [Concomitant]
     Active Substance: CHOLECALCIFEROL
     Indication: PRODUCT USED FOR UNKNOWN INDICATION
     Route: 065
  7. BABY ASPIRIN [Concomitant]
     Active Substance: ASPIRIN
     Indication: PRODUCT USED FOR UNKNOWN INDICATION
     Dosage: INTERVAL: 6 PLUS YEARS
     Route: 065
  8. REACTINE [Suspect]
     Active Substance: CETIRIZINE HYDROCHLORIDE
     Route: 048
  9. DILTIZEM [Concomitant]
     Indication: HYPERTENSION
     Dosage: TOOK ME FROM 260MG TO 180MG AFTER THE INCIDENT.
     Route: 065

REACTIONS (3)
  - Loss of consciousness [Recovered/Resolved]
  - Gastric haemorrhage [Recovered/Resolved]
  - Diarrhoea haemorrhagic [Recovered/Resolved]
